FAERS Safety Report 5004710-7 (Version None)
Quarter: 2006Q1

REPORT INFORMATION
  Report Type: 
  Country: None (occurrence: None)
  Receive Date: 20060321
  Receipt Date: 20060215
  Transmission Date: 20060701
  Serious: No
  Sender: FDA-Public Use
  Company Number: 2006US000121

PATIENT
  Age: 61 Year
  Sex: Female
  Weight: 102 kg

DRUGS (13)
  1. VESICARE [Suspect]
     Dosage: 5MG, ORAL
     Route: 048
  2. INSULIN [Concomitant]
  3. NEXIUM [Concomitant]
  4. ACTOS [Concomitant]
  5. CLONIDINE [Concomitant]
  6. SYNTRHOID  (LEVOTHYROXINE SODIUM) [Concomitant]
  7. ATENOLOL [Concomitant]
  8. AVAPRO [Concomitant]
  9. LOPID [Concomitant]
  10. CRESTOR [Concomitant]
  11. HYDROCHLOROTHIAZIDE [Concomitant]
  12. PLAVIX [Concomitant]
  13. MYOPAX (ATENOLOL) [Concomitant]

REACTIONS (2)
  - CRYING [None]
  - URINARY INCONTINENCE [None]
